FAERS Safety Report 4883916-1 (Version None)
Quarter: 2006Q1

REPORT INFORMATION
  Report Type: 
  Country: None (occurrence: None)
  Receive Date: 20060113
  Receipt Date: 20060104
  Transmission Date: 20060701
  Serious: Yes (Death, Other)
  Sender: FDA-Public Use
  Company Number: JP_030500929

PATIENT
  Age: 70 Year
  Sex: Male
  Weight: 60 kg

DRUGS (1)
  1. GEMZAR [Suspect]
     Indication: PANCREATIC CARCINOMA STAGE IV
     Dosage: 1000 MG/M2, OTHER, INTRAVENOUS
     Route: 042
     Dates: start: 20020529, end: 20020710

REACTIONS (4)
  - GASTROINTESTINAL INFECTION [None]
  - ILEUS PARALYTIC [None]
  - MALIGNANT ASCITES [None]
  - MALIGNANT NEOPLASM PROGRESSION [None]
